FAERS Safety Report 14444466 (Version 1)
Quarter: 2018Q1

REPORT INFORMATION
  Report Type: Spontaneous
  Country: US (occurrence: US)
  Receive Date: 20180125
  Receipt Date: 20180125
  Transmission Date: 20180509
  Serious: No
  Sender: FDA-Public Use
  Company Number: None

PATIENT
  Age: 74 Year
  Sex: Female
  Weight: 54.9 kg

DRUGS (27)
  1. FUROSEMIDE. [Concomitant]
     Active Substance: FUROSEMIDE
  2. MAXZIDE [Concomitant]
     Active Substance: HYDROCHLOROTHIAZIDE\TRIAMTERENE
  3. REVERATROL [Concomitant]
  4. TRIAMTERENE. [Concomitant]
     Active Substance: TRIAMTERENE
  5. XGEVA [Concomitant]
     Active Substance: DENOSUMAB
  6. CAPECITABINE. [Suspect]
     Active Substance: CAPECITABINE
     Indication: BREAST CANCER FEMALE
     Route: 048
     Dates: start: 20170623, end: 20180125
  7. CEFPODOXIME [Concomitant]
     Active Substance: CEFPODOXIME
  8. LEVOTHYROXINE. [Concomitant]
     Active Substance: LEVOTHYROXINE
  9. DEXAMETHASONE. [Concomitant]
     Active Substance: DEXAMETHASONE
  10. EXEMESTANE. [Concomitant]
     Active Substance: EXEMESTANE
  11. NIFEDIPINE. [Concomitant]
     Active Substance: NIFEDIPINE
  12. PSYLLIUM [Concomitant]
     Active Substance: PLANTAGO SEED
  13. ASPIRIN. [Concomitant]
     Active Substance: ASPIRIN
  14. CLOBETASOL PROPIONATE. [Concomitant]
     Active Substance: CLOBETASOL PROPIONATE
  15. MULTI COMPLETE [Concomitant]
  16. CHOLECALCIFEROL [Concomitant]
     Active Substance: CHOLECALCIFEROL
  17. TEA [Concomitant]
     Active Substance: TEA LEAF
  18. ASCORBIC ACID. [Concomitant]
     Active Substance: ASCORBIC ACID
  19. LISINOPRIL. [Concomitant]
     Active Substance: LISINOPRIL
  20. PHENAZOPYRIDINE. [Concomitant]
     Active Substance: PHENAZOPYRIDINE
  21. QUERCETIN [Concomitant]
     Active Substance: QUERCETIN
  22. ZOLPIDEM [Concomitant]
     Active Substance: ZOLPIDEM\ZOLPIDEM TARTRATE
  23. IRON [Concomitant]
     Active Substance: IRON
  24. METFORMIN [Concomitant]
     Active Substance: METFORMIN HYDROCHLORIDE
  25. PROBIOTIC ADVANCED [Concomitant]
  26. XALATAN [Concomitant]
     Active Substance: LATANOPROST
  27. IBUPROFEN. [Concomitant]
     Active Substance: IBUPROFEN

REACTIONS (1)
  - Disease progression [None]

NARRATIVE: CASE EVENT DATE: 20180125
